FAERS Safety Report 24246606 (Version 2)
Quarter: 2024Q3

REPORT INFORMATION
  Report Type: Spontaneous
  Country: DE (occurrence: DE)
  Receive Date: 20240825
  Receipt Date: 20240913
  Transmission Date: 20241017
  Serious: Yes (Other)
  Sender: ORGANON
  Company Number: DE-ORGANON-O2408DEU001593

PATIENT
  Age: 45 Year
  Sex: Female
  Weight: 48 kg

DRUGS (22)
  1. NUVARING [Suspect]
     Active Substance: ETHINYL ESTRADIOL\ETONOGESTREL
     Indication: Contraception
     Dosage: 1 RING (FOR 3 WEEKS)
     Route: 067
     Dates: start: 2006, end: 2024
  2. LAMOTRIGINE [Concomitant]
     Active Substance: LAMOTRIGINE
     Indication: Epilepsy
     Dosage: 200-0-200
     Dates: start: 2013, end: 2023
  3. LAMOTRIGINE [Concomitant]
     Active Substance: LAMOTRIGINE
     Dosage: 25-0-0
     Dates: start: 20130205, end: 20130217
  4. LAMOTRIGINE [Concomitant]
     Active Substance: LAMOTRIGINE
     Dosage: 50-0-0
     Dates: start: 20130216, end: 20130310
  5. LAMOTRIGINE [Concomitant]
     Active Substance: LAMOTRIGINE
     Dosage: 100-0-0
     Dates: start: 20130311, end: 20130324
  6. LAMOTRIGINE [Concomitant]
     Active Substance: LAMOTRIGINE
     Dosage: 125-0-0
     Dates: start: 20130325, end: 20130407
  7. LAMOTRIGINE [Concomitant]
     Active Substance: LAMOTRIGINE
     Dosage: 150-0-0
     Dates: start: 20130409, end: 20130421
  8. LAMOTRIGINE [Concomitant]
     Active Substance: LAMOTRIGINE
     Dosage: 175-0-0
     Dates: start: 20130422, end: 20130505
  9. LAMOTRIGINE [Concomitant]
     Active Substance: LAMOTRIGINE
     Dosage: 200-0-0
     Dates: start: 20130508, end: 20130804
  10. LAMOTRIGINE [Concomitant]
     Active Substance: LAMOTRIGINE
     Dosage: 200-0-25
     Dates: start: 20130805, end: 20130818
  11. LAMOTRIGINE [Concomitant]
     Active Substance: LAMOTRIGINE
     Dosage: 20-0-50
     Dates: start: 20130819, end: 20130901
  12. LAMOTRIGINE [Concomitant]
     Active Substance: LAMOTRIGINE
     Dosage: 200-0-75
     Dates: start: 20130902, end: 20130915
  13. LAMOTRIGINE [Concomitant]
     Active Substance: LAMOTRIGINE
     Dosage: 200-0-100
     Dates: start: 20130916, end: 20131117
  14. LAMOTRIGINE [Concomitant]
     Active Substance: LAMOTRIGINE
     Dosage: 200-0-125
     Dates: start: 20131118, end: 20131201
  15. LAMOTRIGINE [Concomitant]
     Active Substance: LAMOTRIGINE
     Dosage: 200-0-175
     Dates: start: 20131202, end: 20140126
  16. LAMOTRIGINE [Concomitant]
     Active Substance: LAMOTRIGINE
     Dosage: 200-0-200
     Dates: start: 20140128
  17. LAMOTRIGINE [Concomitant]
     Active Substance: LAMOTRIGINE
     Dosage: 250-0-200
     Dates: start: 20161129, end: 20161214
  18. LAMOTRIGINE [Concomitant]
     Active Substance: LAMOTRIGINE
     Dosage: 300-0-200
     Dates: start: 20161215
  19. LAMOTRIGINE [Concomitant]
     Active Substance: LAMOTRIGINE
     Dosage: 250-0-200
     Dates: start: 20170106, end: 20170120
  20. LAMOTRIGINE [Concomitant]
     Active Substance: LAMOTRIGINE
     Dosage: 200-0-200
     Dates: start: 20170121
  21. LEVETIRACETAM [Concomitant]
     Active Substance: LEVETIRACETAM
     Dosage: 500-0-500
     Dates: start: 2023
  22. EUTHYROX [Concomitant]
     Active Substance: LEVOTHYROXINE SODIUM
     Indication: Graves^ disease
     Dosage: 100
     Dates: start: 2015

REACTIONS (2)
  - Drug withdrawal convulsions [Unknown]
  - Therapeutic response unexpected [Unknown]
